FAERS Safety Report 6621961-6 (Version None)
Quarter: 2010Q1

REPORT INFORMATION
  Report Type: 
  Country: None (occurrence: None)
  Receive Date: 20100303
  Receipt Date: 20100217
  Transmission Date: 20100710
  Serious: No
  Sender: FDA-Public Use
  Company Number: 510397

PATIENT
  Age: 61 Year
  Sex: Male

DRUGS (9)
  1. HEPARIN SODIUM INJECTION [Suspect]
     Indication: DRUG USE FOR UNKNOWN INDICATION
     Dosage: 25000 UNITS IN 500 D5W, CONTINUOUS INTRAVENOUS
     Route: 042
     Dates: start: 20071031, end: 20071102
  2. COUMADIN [Concomitant]
  3. TOPROL-XL [Concomitant]
  4. ALTACE [Concomitant]
  5. LIPITOR [Concomitant]
  6. CALCIUM [Concomitant]
  7. MULTI-VITAMINS [Concomitant]
  8. PREVACID [Concomitant]
  9. VITAMIN C [Concomitant]

REACTIONS (14)
  - ACTIVATED PARTIAL THROMBOPLASTIN TIME PROLONGED [None]
  - HAEMOGLOBIN DECREASED [None]
  - HAEMORRHAGE [None]
  - HEART RATE DECREASED [None]
  - HEPARIN-INDUCED THROMBOCYTOPENIA [None]
  - HYPOVOLAEMIC SHOCK [None]
  - INTERNATIONAL NORMALISED RATIO DECREASED [None]
  - OEDEMA [None]
  - PAIN [None]
  - PROTHROMBIN TIME PROLONGED [None]
  - RED BLOOD CELL COUNT DECREASED [None]
  - RENAL FAILURE ACUTE [None]
  - RETROPERITONEAL HAEMORRHAGE [None]
  - THROMBOSIS IN DEVICE [None]
